FAERS Safety Report 8008335-0 (Version None)
Quarter: 2011Q4

REPORT INFORMATION
  Report Type: 
  Country: None (occurrence: None)
  Receive Date: 20111227
  Receipt Date: 20111219
  Transmission Date: 20120403
  Serious: Yes (Death)
  Sender: FDA-Public Use
  Company Number: US-CELGENEUS-163-21880-11122567

PATIENT
  Sex: Female
  Weight: 42.2 kg

DRUGS (25)
  1. REVLIMID [Suspect]
     Indication: GLIOBLASTOMA
     Dosage: 10 MILLIGRAM
     Route: 048
     Dates: start: 20111006, end: 20111204
  2. RED BLOOD CELLS [Concomitant]
     Route: 065
     Dates: start: 20111207, end: 20111207
  3. FORTAZ [Concomitant]
     Dosage: 2 GRAM
  4. FLUCONAZOLE [Concomitant]
     Dosage: 400 MILLIGRAM
     Route: 041
     Dates: start: 20111201
  5. CEFEPIME [Concomitant]
     Dates: start: 20111201, end: 20111201
  6. IRINOTECAN HYDROCHLORIDE [Suspect]
     Indication: GLIOBLASTOMA
     Dosage: 150 MILLIGRAM/SQ. METER
     Route: 041
     Dates: start: 20111006, end: 20111204
  7. ATIVAN [Concomitant]
     Indication: ANXIETY
     Route: 065
  8. OMEPRAZOLE [Concomitant]
     Route: 065
  9. PROTONIX [Concomitant]
     Dosage: 40 MILLIGRAM
     Route: 040
  10. VANCOMYCIN HYCHLORIDE [Concomitant]
     Route: 065
  11. MORPHINE [Concomitant]
     Indication: PAIN
     Route: 065
  12. DEXAMETHASONE SODIUM PHOSPHATE [Concomitant]
     Dosage: 4 MILLIGRAM
     Route: 040
  13. LOVENOX [Concomitant]
     Indication: PROPHYLAXIS
     Dosage: 30 MILLIGRAM
     Route: 058
  14. LEVETIRACETAM [Concomitant]
     Dosage: 500 MILLIGRAM
     Route: 048
  15. KEPPRA [Concomitant]
     Dosage: 500 MILLIGRAM
  16. KEPPRA [Concomitant]
     Dosage: 500 MILLIGRAM
     Route: 048
  17. WARFARIN [Concomitant]
     Dosage: 1 MILLIGRAM
     Route: 065
  18. PROTONIX [Concomitant]
     Indication: PROPHYLAXIS
     Dosage: 40 MILLIGRAM
     Route: 048
  19. MYCAMINE [Concomitant]
     Dosage: 100 MILLIGRAM
  20. PREMPRO [Concomitant]
     Route: 065
  21. FREE WATER FLUSHES [Concomitant]
     Route: 065
     Dates: start: 20111201, end: 20111201
  22. DEXAMETHASONE SODIUM PHOSPHATE [Concomitant]
     Dosage: 2 MILLIGRAM
     Route: 040
  23. ZOFRAN [Concomitant]
     Route: 065
  24. SODIUM CHLORIDE [Concomitant]
     Dosage: 2 GRAM
  25. KLOR-CON [Concomitant]
     Route: 048

REACTIONS (1)
  - UPPER RESPIRATORY TRACT INFECTION [None]
